FAERS Safety Report 9407041 (Version 4)
Quarter: 2013Q4

REPORT INFORMATION
  Report Type: Report from Study
  Country: DE (occurrence: DE)
  Receive Date: 20130718
  Receipt Date: 20131108
  Transmission Date: 20140711
  Serious: Yes (Death, Life-Threatening, Hospitalization, Other)
  Sender: FDA-Public Use
  Company Number: DE-CELGENEUS-062-21880-13070980

PATIENT
  Age: 56 Year
  Sex: Female
  Weight: 56 kg

DRUGS (6)
  1. REVLIMID [Suspect]
     Indication: CHRONIC LYMPHOCYTIC LEUKAEMIA
     Dosage: 15 MILLIGRAM
     Route: 048
     Dates: start: 20130214, end: 20130706
  2. BENDAMUSTINE [Suspect]
     Indication: CHRONIC LYMPHOCYTIC LEUKAEMIA
     Dosage: 150 MILLIGRAM
     Route: 041
     Dates: start: 20130207
  3. RITUXIMAB [Suspect]
     Indication: CHRONIC LYMPHOCYTIC LEUKAEMIA
     Dosage: 840 MILLIGRAM
     Route: 041
     Dates: start: 20130206
  4. MORPHINE [Concomitant]
     Indication: PRODUCT USED FOR UNKNOWN INDICATION
     Route: 041
     Dates: end: 20130817
  5. MIDAZOLAM [Concomitant]
     Indication: PRODUCT USED FOR UNKNOWN INDICATION
     Route: 041
     Dates: end: 20130817
  6. VALPROIC ACID [Concomitant]
     Indication: PRODUCT USED FOR UNKNOWN INDICATION
     Route: 041
     Dates: end: 20130817

REACTIONS (2)
  - Cardiac arrest [Fatal]
  - Pulmonary sepsis [Not Recovered/Not Resolved]
